FAERS Safety Report 9587747 (Version 1)
Quarter: 2013Q4

REPORT INFORMATION
  Report Type: Spontaneous
  Country: US (occurrence: US)
  Receive Date: 20131003
  Receipt Date: 20131003
  Transmission Date: 20140711
  Serious: No
  Sender: FDA-Public Use
  Company Number: US-COVIDIEN/TYCO HEALTHCARE/MALLINCKRODT-T201303394

PATIENT
  Sex: Female
  Weight: 99.77 kg

DRUGS (5)
  1. EXALGO EXTENDED RELEASE [Suspect]
     Indication: BACK PAIN
     Dosage: 16 MG DAILY
     Route: 048
     Dates: start: 2012, end: 2012
  2. EXALGO EXTENDED RELEASE [Suspect]
     Dosage: 32 MG DAILY
     Route: 048
  3. EXALGO EXTENDED RELEASE [Suspect]
     Dosage: 40 MG DAILY
     Route: 048
     Dates: start: 201305, end: 201305
  4. HYDROMORPHONE [Concomitant]
     Indication: BACK PAIN
     Dosage: 8 MG, 1-2 DAILY
     Route: 048
  5. FENTANYL [Concomitant]
     Indication: BACK PAIN
     Dosage: 100 MCG/HR, Q 72 HRS
     Route: 062
     Dates: start: 1999

REACTIONS (2)
  - Chest pain [Recovered/Resolved]
  - Extra dose administered [Recovered/Resolved]
